FAERS Safety Report 5491979-8 (Version None)
Quarter: 2007Q4

REPORT INFORMATION
  Report Type: 
  Country: None (occurrence: None)
  Receive Date: 20071022
  Receipt Date: 20071018
  Transmission Date: 20080405
  Serious: Yes (Other)
  Sender: FDA-Public Use
  Company Number: A0688509A

PATIENT
  Age: 43 Year
  Sex: Female

DRUGS (7)
  1. ADVAIR DISKUS 100/50 [Suspect]
     Indication: ASTHMA
     Dosage: 1PUFF TWICE PER DAY
     Route: 055
     Dates: start: 20050101, end: 20070701
  2. FLONASE [Suspect]
     Dosage: 1SPR TWICE PER DAY
     Route: 045
     Dates: start: 20060801, end: 20070301
  3. FLOVENT [Suspect]
     Indication: ASTHMA
     Dosage: 2SPR TWICE PER DAY
     Route: 055
     Dates: start: 20071010
  4. SEREVENT [Suspect]
     Indication: ASTHMA
     Dosage: 1PUFF PER DAY
     Route: 055
     Dates: start: 20071010
  5. XANAX [Concomitant]
  6. SINGULAIR [Concomitant]
  7. ALBUTEROL [Concomitant]

REACTIONS (10)
  - ASTHMA [None]
  - CHORIORETINOPATHY [None]
  - COUGH [None]
  - FATIGUE [None]
  - HEART RATE IRREGULAR [None]
  - INFLUENZA LIKE ILLNESS [None]
  - PAIN [None]
  - PHARYNGOLARYNGEAL PAIN [None]
  - RESTLESSNESS [None]
  - TREMOR [None]
